FAERS Safety Report 25023262 (Version 1)
Quarter: 2025Q1

REPORT INFORMATION
  Report Type: Spontaneous
  Country: US (occurrence: US)
  Receive Date: 20250228
  Receipt Date: 20250228
  Transmission Date: 20250409
  Serious: Yes (Other)
  Sender: JOHNSON AND JOHNSON
  Company Number: US-JNJFOC-20250256885

PATIENT
  Sex: Female

DRUGS (1)
  1. TALQUETAMAB [Suspect]
     Active Substance: TALQUETAMAB
     Indication: Product used for unknown indication
     Route: 065

REACTIONS (6)
  - Clostridium difficile infection [Unknown]
  - Foot fracture [Recovered/Resolved]
  - Ageusia [Unknown]
  - Skin disorder [Unknown]
  - Fatigue [Unknown]
  - Weight decreased [Unknown]
